FAERS Safety Report 4362010-2 (Version None)
Quarter: 2004Q2

REPORT INFORMATION
  Report Type: 
  Country: None (occurrence: None)
  Receive Date: 20040521
  Receipt Date: 20040216
  Transmission Date: 20050107
  Serious: No
  Sender: FDA-Public Use
  Company Number: US-GLAXOSMITHKLINE-A0498361A

PATIENT
  Sex: Female

DRUGS (2)
  1. WELLBUTRIN [Suspect]
     Indication: ILL-DEFINED DISORDER
     Dosage: 150MG UNKNOWN
     Route: 048
  2. EFFEXOR [Suspect]
     Indication: ILL-DEFINED DISORDER
     Route: 065

REACTIONS (3)
  - ADVERSE EVENT [None]
  - CHEST DISCOMFORT [None]
  - DYSPNOEA [None]
